FAERS Safety Report 4620062-6 (Version None)
Quarter: 2005Q1

REPORT INFORMATION
  Report Type: 
  Country: None (occurrence: None)
  Receive Date: 20050321
  Receipt Date: 20050321
  Transmission Date: 20050727
  Serious: No
  Sender: FDA-Public Use
  Company Number: None

PATIENT

DRUGS (6)
  1. BENAZEPRIL HCL [Suspect]
     Dosage: TABLET
  2. LISINOPRIL [Suspect]
     Dosage: TABLET
  3. BENAZEPRIL HCL [Suspect]
     Dosage: TABLET
  4. LISINOPRIL [Suspect]
     Dosage: TABLET
  5. BENAZEPRIL HCL [Suspect]
     Dosage: TABLET
  6. FAMOTIDINE [Suspect]
     Dosage: TABLET

REACTIONS (1)
  - MEDICATION ERROR [None]
